FAERS Safety Report 7825033-4 (Version None)
Quarter: 2011Q4

REPORT INFORMATION
  Report Type: 
  Country: None (occurrence: None)
  Receive Date: 20111019
  Receipt Date: 20110404
  Transmission Date: 20120403
  Serious: No
  Sender: FDA-Public Use
  Company Number: US-BRISTOL-MYERS SQUIBB COMPANY-15651508

PATIENT
  Age: 82 Year
  Sex: Male

DRUGS (4)
  1. DYNACIRC [Suspect]
  2. LABETALOL HCL [Suspect]
  3. LIPITOR [Concomitant]
  4. AVALIDE [Suspect]
     Dosage: 1DF= AVALIDE 300 /25 MG, DURATION : MORE THEN 3 YEARS

REACTIONS (1)
  - BLOOD PRESSURE INCREASED [None]
